FAERS Safety Report 7282135-1 (Version None)
Quarter: 2011Q1

REPORT INFORMATION
  Report Type: 
  Country: None (occurrence: None)
  Receive Date: 20110208
  Receipt Date: 20110202
  Transmission Date: 20110831
  Serious: Yes (Other)
  Sender: FDA-Public Use
  Company Number: MX-PFIZER INC-2011025151

PATIENT
  Age: 63 Year
  Sex: Male

DRUGS (3)
  1. LIPITOR [Suspect]
     Route: 048
  2. LOPID [Suspect]
     Route: 048
  3. PRAVASTATIN [Concomitant]
     Route: 048

REACTIONS (2)
  - HAND FRACTURE [None]
  - MYALGIA [None]
